FAERS Safety Report 21521634 (Version 6)
Quarter: 2022Q4

REPORT INFORMATION
  Report Type: Report from Study
  Country: KR (occurrence: KR)
  Receive Date: 20221028
  Receipt Date: 20221202
  Transmission Date: 20230113
  Serious: Yes (Hospitalization)
  Sender: FDA-Public Use
  Company Number: JP-BRISTOL-MYERS SQUIBB COMPANY-2022-128173

PATIENT
  Age: 67 Year
  Sex: Male
  Weight: 51 kg

DRUGS (26)
  1. IPILIMUMAB [Suspect]
     Active Substance: IPILIMUMAB
     Indication: Gastric cancer
     Route: 065
     Dates: start: 20220831, end: 20220831
  2. GIMERACIL\OTERACIL\TEGAFUR [Suspect]
     Active Substance: GIMERACIL\OTERACIL\TEGAFUR
     Indication: Gastric cancer
     Route: 048
     Dates: start: 20220831, end: 20220913
  3. GIMERACIL\OTERACIL\TEGAFUR [Suspect]
     Active Substance: GIMERACIL\OTERACIL\TEGAFUR
     Route: 048
     Dates: start: 20220901, end: 20220914
  4. GIMERACIL\OTERACIL\TEGAFUR [Suspect]
     Active Substance: GIMERACIL\OTERACIL\TEGAFUR
     Route: 048
     Dates: start: 20220921, end: 20221004
  5. GIMERACIL\OTERACIL\TEGAFUR [Suspect]
     Active Substance: GIMERACIL\OTERACIL\TEGAFUR
     Route: 048
     Dates: start: 20220922, end: 20221005
  6. GIMERACIL\OTERACIL\TEGAFUR [Suspect]
     Active Substance: GIMERACIL\OTERACIL\TEGAFUR
     Route: 048
     Dates: start: 20221107, end: 20221120
  7. GIMERACIL\OTERACIL\TEGAFUR [Suspect]
     Active Substance: GIMERACIL\OTERACIL\TEGAFUR
     Route: 048
     Dates: start: 20221108, end: 20221121
  8. OXALIPLATIN [Suspect]
     Active Substance: OXALIPLATIN
     Indication: Gastric cancer
     Route: 065
     Dates: start: 20220831, end: 20220831
  9. OXALIPLATIN [Suspect]
     Active Substance: OXALIPLATIN
     Route: 065
     Dates: start: 20220921, end: 20220921
  10. OXALIPLATIN [Suspect]
     Active Substance: OXALIPLATIN
     Route: 065
     Dates: start: 20221107, end: 20221107
  11. OXALIPLATIN [Suspect]
     Active Substance: OXALIPLATIN
     Route: 065
     Dates: start: 20221128, end: 20221128
  12. MEGESTROL [Concomitant]
     Active Substance: MEGESTROL
     Indication: Product used for unknown indication
     Route: 065
     Dates: start: 20220914, end: 20221012
  13. LEVOCETIRIZINE [Concomitant]
     Active Substance: LEVOCETIRIZINE
     Indication: Rash
     Dosage: 5 MG
     Route: 065
     Dates: start: 20220914, end: 20221012
  14. PREDISOL [METHYLPREDNISOLONE] [Concomitant]
     Indication: Product used for unknown indication
     Route: 065
     Dates: start: 20221019, end: 20221023
  15. VACRAX [ACICLOVIR] [Concomitant]
     Indication: Rash
     Route: 061
     Dates: start: 20220914, end: 20221011
  16. LACTICARE HC [DL- LACTIC ACID;HYDROCORTISONE;SODIUM PIDOLATE] [Concomitant]
     Indication: Rash
     Route: 061
     Dates: start: 20221012, end: 20221019
  17. LACTICARE HC [DL- LACTIC ACID;HYDROCORTISONE;SODIUM PIDOLATE] [Concomitant]
     Route: 061
     Dates: start: 20221121
  18. PALONOSETRON [Concomitant]
     Active Substance: PALONOSETRON
     Indication: Product used for unknown indication
     Dosage: 118 G
     Route: 065
     Dates: start: 20221107, end: 20221107
  19. PALONOSETRON [Concomitant]
     Active Substance: PALONOSETRON
     Dosage: 118 G
     Route: 065
     Dates: start: 20220921, end: 20220921
  20. PALONOSETRON [Concomitant]
     Active Substance: PALONOSETRON
     Dosage: 118 G
     Route: 065
     Dates: start: 20221128, end: 20221128
  21. FOSAPREPITANT [Concomitant]
     Active Substance: FOSAPREPITANT
     Indication: Product used for unknown indication
     Dosage: 118 G
     Route: 065
     Dates: start: 20220921, end: 20220921
  22. FOSAPREPITANT [Concomitant]
     Active Substance: FOSAPREPITANT
     Route: 065
     Dates: start: 20221107, end: 20221107
  23. FOSAPREPITANT [Concomitant]
     Active Substance: FOSAPREPITANT
     Route: 065
     Dates: start: 20221128, end: 20221128
  24. DEXAMETHASONE [Concomitant]
     Active Substance: DEXAMETHASONE
     Indication: Product used for unknown indication
     Route: 065
     Dates: start: 20220921, end: 20220921
  25. METOCLOPRAMIDE [Concomitant]
     Active Substance: METOCLOPRAMIDE
     Indication: Nausea
     Route: 065
     Dates: start: 20220921, end: 20220925
  26. LEVOCETIRIZINE [Concomitant]
     Active Substance: LEVOCETIRIZINE
     Indication: Rash
     Route: 065
     Dates: start: 20220914, end: 20221012

REACTIONS (4)
  - Asthenia [Recovered/Resolved]
  - Blood bilirubin increased [Recovered/Resolved]
  - Aspartate aminotransferase increased [Recovered/Resolved]
  - Alanine aminotransferase increased [Recovered/Resolved]

NARRATIVE: CASE EVENT DATE: 20221019
